FAERS Safety Report 6507350-3 (Version None)
Quarter: 2009Q4

REPORT INFORMATION
  Report Type: 
  Country: None (occurrence: None)
  Receive Date: 20091221
  Receipt Date: 20091209
  Transmission Date: 20100525
  Serious: Yes (Hospitalization)
  Sender: FDA-Public Use
  Company Number: SE-PFIZER INC-2009307616

PATIENT
  Age: 53 Year

DRUGS (4)
  1. SALAZOPYRIN [Suspect]
     Indication: PSORIATIC ARTHROPATHY
     Dosage: UNK
     Route: 048
     Dates: start: 20090217, end: 20090331
  2. COZAAR [Concomitant]
     Dosage: UNK
  3. PREDNISOLONE [Concomitant]
     Dosage: UNK
  4. BRUFEN - SLOW RELEASE [Concomitant]
     Dosage: UNK

REACTIONS (1)
  - NEUTROPENIA [None]
